FAERS Safety Report 5288415-3 (Version None)
Quarter: 2007Q2

REPORT INFORMATION
  Report Type: 
  Country: None (occurrence: None)
  Receive Date: 20070405
  Receipt Date: 20070330
  Transmission Date: 20071010
  Serious: Yes (Hospitalization)
  Sender: FDA-Public Use
  Company Number: US-MERCK-0704USA00024

PATIENT
  Age: 64 Year
  Sex: Male

DRUGS (7)
  1. JANUVIA [Suspect]
     Indication: DIABETES MELLITUS NON-INSULIN-DEPENDENT
     Route: 048
     Dates: end: 20070301
  2. JANUVIA [Suspect]
     Route: 048
     Dates: start: 20070301
  3. JANUVIA [Suspect]
     Indication: BLOOD GLUCOSE INCREASED
     Route: 048
     Dates: end: 20070301
  4. JANUVIA [Suspect]
     Route: 048
     Dates: start: 20070301
  5. ACTOS [Concomitant]
     Route: 065
     Dates: end: 20070301
  6. ACTOS [Concomitant]
     Route: 065
     Dates: start: 20070301
  7. INSULIN [Concomitant]
     Route: 065

REACTIONS (5)
  - CARDIAC OPERATION [None]
  - CARDIOVASCULAR DISORDER [None]
  - DIABETES MELLITUS INADEQUATE CONTROL [None]
  - DRUG INEFFECTIVE [None]
  - NO THERAPEUTIC RESPONSE [None]
